FAERS Safety Report 8302763 (Version 3)
Quarter: 2013Q3

REPORT INFORMATION
  Report Type: Spontaneous
  Country: CA (occurrence: CA)
  Receive Date: 20111220
  Receipt Date: 20130918
  Transmission Date: 20140515
  Serious: Yes (Death, Hospitalization)
  Sender: FDA-Public Use
  Company Number: CA-GLAXOSMITHKLINE-A0958089A

PATIENT
  Sex: Female

DRUGS (15)
  1. VOTRIENT [Suspect]
     Indication: RENAL CANCER METASTATIC
     Dosage: 800MG PER DAY
     Route: 048
     Dates: start: 20110426
  2. HCTZ [Concomitant]
  3. MG OXIDE [Concomitant]
  4. ASA [Concomitant]
  5. LIPITOR [Concomitant]
     Dosage: 60MG PER DAY
  6. DIOVAN [Concomitant]
  7. PLENDIL [Concomitant]
  8. SERTRALINE [Concomitant]
  9. TYLENOL 3 [Concomitant]
  10. STATEX [Concomitant]
  11. ADVAIR [Concomitant]
  12. SPIRIVA [Concomitant]
  13. VENTOLIN [Concomitant]
  14. GAVISCON [Concomitant]
  15. NEXIUM [Concomitant]

REACTIONS (7)
  - Decreased appetite [Unknown]
  - Diarrhoea [Recovering/Resolving]
  - Balance disorder [Unknown]
  - Anosmia [Unknown]
  - Hip fracture [Not Recovered/Not Resolved]
  - Fall [Not Recovered/Not Resolved]
  - Death [Fatal]
